FAERS Safety Report 9276011 (Version 1)
Quarter: 2012Q4

REPORT INFORMATION
  Report Type: Spontaneous
  Country: US (occurrence: None)
  Receive Date: 20121109
  Receipt Date: 20121109
  Transmission Date: 20130627
  Serious: Yes (Death, Hospitalization, Other)
  Sender: FDA-Public Use
  Company Number: 2012S1000208

PATIENT
  Age: 67 Year
  Sex: Male
  Weight: 114 kg

DRUGS (11)
  1. CUBICIN [Suspect]
     Indication: OSTEOMYELITIS
     Route: 042
     Dates: start: 20110908, end: 20111002
  2. LASIX-K [Concomitant]
  3. METFORMIN [Concomitant]
  4. INDAPAMIDE [Concomitant]
  5. QUINAPRIL [Concomitant]
  6. IBUPROFEN [Concomitant]
  7. CITALOPRAM [Concomitant]
  8. LOVASTATIN [Concomitant]
  9. ALL OTHER THERAPEUTIC PRODUCTS [Concomitant]
  10. IRON [Concomitant]
  11. VITAMIN B12 (CYANOCOBALAMIN AND DERIVATIVES) [Concomitant]

REACTIONS (6)
  - Eosinophilic pneumonia [None]
  - Respiratory failure [None]
  - Renal failure acute [None]
  - Haemodialysis [None]
  - Haemoglobin decreased [None]
  - Platelet count increased [None]
